FAERS Safety Report 4531055-1 (Version None)
Quarter: 2004Q4

REPORT INFORMATION
  Report Type: 
  Country: None (occurrence: None)
  Receive Date: 20041206
  Receipt Date: 20041022
  Transmission Date: 20050328
  Serious: Yes (Hospitalization)
  Sender: FDA-Public Use
  Company Number: US_0410107233

PATIENT
  Age: 59 Year
  Sex: Female

DRUGS (3)
  1. CYMBALATA (DULOXETINE HYDROCHLORIDE) [Suspect]
     Indication: MAJOR DEPRESSION
     Dosage: 60 MG DAY
     Dates: start: 20041008
  2. ARIPIPRAZOLE [Concomitant]
  3. SERTRALINE HYDROCHLORIDE [Concomitant]

REACTIONS (1)
  - SUICIDE ATTEMPT [None]
